FAERS Safety Report 9074696 (Version 1)
Quarter: 2013Q1

REPORT INFORMATION
  Report Type: Report from Study
  Country: US (occurrence: US)
  Receive Date: 20130128
  Receipt Date: 20130128
  Transmission Date: 20140127
  Serious: No
  Sender: FDA-Public Use
  Company Number: US-ABBOTT-12P-163-0900004-00

PATIENT
  Age: 36 Year
  Sex: Male

DRUGS (3)
  1. HUMIRA 40 MG/0.8 ML PEN [Suspect]
     Indication: CROHN^S DISEASE
     Dosage: ONLY HAD 2 DOSES
     Dates: start: 20111201, end: 20120120
  2. XIFAXAN [Concomitant]
     Indication: DIARRHOEA
  3. LOMOTIL [Concomitant]
     Indication: DIARRHOEA

REACTIONS (3)
  - Adverse reaction [Unknown]
  - Headache [Unknown]
  - Diarrhoea [Unknown]
